FAERS Safety Report 23224034 (Version 1)
Quarter: 2023Q4

REPORT INFORMATION
  Report Type: Spontaneous
  Country: US (occurrence: US)
  Receive Date: 20231124
  Receipt Date: 20231124
  Transmission Date: 20240110
  Serious: No
  Sender: FDA-Public Use
  Company Number: US-JNJFOC-20231115944

PATIENT
  Age: 72 Year
  Sex: Female

DRUGS (2)
  1. ZYRTEC [Suspect]
     Active Substance: CETIRIZINE HYDROCHLORIDE
     Indication: Arthropod bite
     Route: 048
     Dates: start: 20231103
  2. ZYRTEC [Suspect]
     Active Substance: CETIRIZINE HYDROCHLORIDE
     Indication: Pruritus

REACTIONS (2)
  - Product use in unapproved indication [Unknown]
  - Accidental overdose [Unknown]

NARRATIVE: CASE EVENT DATE: 20231103
